FAERS Safety Report 25272246 (Version 1)
Quarter: 2025Q2

REPORT INFORMATION
  Report Type: Spontaneous
  Country: US (occurrence: US)
  Receive Date: 20250506
  Receipt Date: 20250506
  Transmission Date: 20250717
  Serious: Yes (Hospitalization, Other)
  Sender: COSETTE PHARMACEUTICALS INC
  Company Number: US-COSETTE-CP2025US000441

PATIENT
  Age: 34 Year
  Sex: Male

DRUGS (1)
  1. CLOMIPHENE CITRATE [Suspect]
     Active Substance: CLOMIPHENE CITRATE
     Indication: Blood testosterone decreased
     Route: 065

REACTIONS (4)
  - Myocardial infarction [Unknown]
  - Heart failure with reduced ejection fraction [Unknown]
  - Coronary artery thrombosis [Unknown]
  - Off label use [Unknown]
